FAERS Safety Report 7502212-7 (Version None)
Quarter: 2011Q2

REPORT INFORMATION
  Report Type: 
  Country: None (occurrence: None)
  Receive Date: 20110525
  Receipt Date: 20110513
  Transmission Date: 20111010
  Serious: Yes (Hospitalization, Other)
  Sender: FDA-Public Use
  Company Number: JP-AMGEN-JPNCT2011004080

PATIENT
  Age: 71 Year
  Sex: Female
  Weight: 47 kg

DRUGS (24)
  1. IRINOTECAN HCL [Suspect]
     Indication: COLORECTAL CANCER
     Route: 041
     Dates: start: 20101105, end: 20101105
  2. IRINOTECAN HCL [Suspect]
     Route: 041
     Dates: start: 20101203
  3. CORTICOSTEROIDS [Concomitant]
     Indication: PROPHYLAXIS
     Dosage: UNK
     Route: 065
  4. MAGNESIUM SULFATE [Concomitant]
     Dosage: UNK
     Route: 048
  5. LOCOID CREAM [Concomitant]
     Dosage: UNK
     Route: 062
  6. KYTRIL [Concomitant]
     Dosage: UNK
     Route: 042
  7. DEXART [Concomitant]
     Dosage: UNK
     Route: 042
  8. HIRUDOID SOFT [Concomitant]
     Dosage: UNK
     Route: 062
  9. LEUCOVORIN CALCIUM [Concomitant]
     Indication: COLORECTAL CANCER
     Route: 041
     Dates: start: 20101021, end: 20101021
  10. FLUOROURACIL [Suspect]
     Indication: COLORECTAL CANCER
     Route: 040
     Dates: start: 20101021, end: 20101021
  11. UREPEARL CREAM [Concomitant]
     Dosage: UNK
     Route: 062
  12. MYSER OINTMENT [Concomitant]
     Dosage: UNK
     Route: 062
  13. ANTIHISTAMINES [Concomitant]
     Indication: PROPHYLAXIS
     Dosage: UNK
     Route: 065
  14. PANITUMUMAB [Suspect]
     Indication: COLORECTAL CANCER
     Dosage: 6 MG/KG, Q2WK
     Route: 041
     Dates: start: 20101021, end: 20101021
  15. PANITUMUMAB [Suspect]
     Dosage: 6 MG/KG, Q2WK
     Route: 041
     Dates: start: 20101203
  16. FLUOROURACIL [Suspect]
     Route: 041
     Dates: start: 20101021, end: 20101021
  17. POLARAMINE [Concomitant]
     Dosage: UNK
     Route: 042
  18. ALPRAZOLAM [Concomitant]
     Dosage: UNK
     Route: 048
  19. FAMOTIDINE [Concomitant]
     Dosage: UNK
     Route: 042
  20. NORVASC [Concomitant]
     Dosage: UNK
     Route: 048
  21. LIDOMEX LOTION [Concomitant]
     Dosage: UNK
     Route: 062
  22. ERBITUX [Suspect]
     Indication: COLORECTAL CANCER
     Dosage: 540 MG, UNK
     Route: 041
     Dates: start: 20101105, end: 20101105
  23. OXALIPLATIN [Concomitant]
     Indication: COLORECTAL CANCER
     Route: 041
     Dates: start: 20101021, end: 20101021
  24. VENA [Concomitant]
     Dosage: UNK
     Route: 048

REACTIONS (6)
  - BACK PAIN [None]
  - VOMITING [None]
  - DYSGEUSIA [None]
  - RASH [None]
  - URTICARIA [None]
  - INSOMNIA [None]
